FAERS Safety Report 9723925 (Version 2)
Quarter: 2013Q4

REPORT INFORMATION
  Report Type: Spontaneous
  Country: NL (occurrence: NL)
  Receive Date: 20131202
  Receipt Date: 20131224
  Transmission Date: 20140711
  Serious: Yes (Hospitalization)
  Sender: FDA-Public Use
  Company Number: NL-IPSEN BIOPHARMACEUTICALS, INC.-2013-5253

PATIENT
  Sex: Female

DRUGS (1)
  1. DYSPORT [Suspect]
     Indication: SKIN WRINKLING
     Dosage: NOT REPORTED
     Route: 065

REACTIONS (2)
  - Hypersensitivity [Unknown]
  - Oedema [Unknown]
